FAERS Safety Report 20239090 (Version 1)
Quarter: 2021Q4

REPORT INFORMATION
  Report Type: Spontaneous
  Country: US (occurrence: US)
  Receive Date: 20211228
  Receipt Date: 20211228
  Transmission Date: 20220304
  Serious: Yes (Other)
  Sender: FDA-Public Use
  Company Number: US-PFIZER INC-202101797277

PATIENT
  Age: 76 Year
  Sex: Female

DRUGS (1)
  1. VYNDAMAX [Suspect]
     Active Substance: TAFAMIDIS
     Dosage: 61 MG

REACTIONS (19)
  - Cardiac amyloidosis [Unknown]
  - Carotid artery stenosis [Unknown]
  - Cardiac failure chronic [Unknown]
  - Gastrointestinal arteriovenous malformation [Unknown]
  - Hyperthyroidism [Unknown]
  - Atrial fibrillation [Unknown]
  - Atrial appendage closure [Unknown]
  - Anaemia [Unknown]
  - Chest pain [Unknown]
  - Diastolic dysfunction [Unknown]
  - Hyperlipidaemia [Unknown]
  - Hypertension [Unknown]
  - Monoclonal gammopathy [Unknown]
  - Sleep apnoea syndrome [Unknown]
  - Palpitations [Unknown]
  - Dyspnoea [Unknown]
  - Somnolence [Unknown]
  - Sinus bradycardia [Unknown]
  - Supraventricular extrasystoles [Unknown]
